FAERS Safety Report 4731853-5 (Version None)
Quarter: 2005Q3

REPORT INFORMATION
  Report Type: 
  Country: None (occurrence: None)
  Receive Date: 20050719
  Receipt Date: 20041201
  Transmission Date: 20060218
  Serious: Yes (Hospitalization)
  Sender: FDA-Public Use
  Company Number: 2004BI000739

PATIENT
  Age: 43 Year
  Sex: Female
  Weight: 58.0604 kg

DRUGS (2)
  1. AVONEX [Suspect]
     Indication: MULTIPLE SCLEROSIS
     Dosage: QW;IM
     Route: 030
     Dates: start: 20020101, end: 20041101
  2. PROZAC [Concomitant]

REACTIONS (3)
  - POLLAKIURIA [None]
  - URINARY TRACT INFECTION [None]
  - URINE ODOUR ABNORMAL [None]
